FAERS Safety Report 10599626 (Version 3)
Quarter: 2018Q1

REPORT INFORMATION
  Report Type: Spontaneous
  Country: IT (occurrence: IT)
  Receive Date: 20141121
  Receipt Date: 20180316
  Transmission Date: 20180508
  Serious: Yes (Hospitalization, Other)
  Sender: FDA-Public Use
  Company Number: IT-ELI_LILLY_AND_COMPANY-IT201411007351

PATIENT
  Age: 46 Year
  Sex: Male

DRUGS (2)
  1. OLANZAPINE. [Suspect]
     Active Substance: OLANZAPINE
     Indication: SCHIZOAFFECTIVE DISORDER DEPRESSIVE TYPE
     Dosage: 20 MG, QD
     Route: 048
  2. VALPROAT [Suspect]
     Active Substance: VALPROATE SODIUM
     Indication: SCHIZOAFFECTIVE DISORDER DEPRESSIVE TYPE
     Dosage: 400 MG, QD
     Route: 065

REACTIONS (8)
  - Social avoidant behaviour [Recovered/Resolved]
  - Anhedonia [Recovered/Resolved]
  - Depressed mood [Recovered/Resolved]
  - Disturbance in attention [Recovered/Resolved]
  - Suicidal ideation [Recovered/Resolved]
  - Hallucination [Recovered/Resolved]
  - Fatigue [Recovered/Resolved]
  - Terminal insomnia [Recovered/Resolved]
